FAERS Safety Report 18630616 (Version 3)
Quarter: 2021Q1

REPORT INFORMATION
  Report Type: Report from Study
  Country: US (occurrence: US)
  Receive Date: 20201218
  Receipt Date: 20210325
  Transmission Date: 20210419
  Serious: Yes (Hospitalization, Other)
  Sender: FDA-Public Use
  Company Number: US-EMD SERONO-9187531

PATIENT
  Age: 63 Year
  Sex: Female

DRUGS (5)
  1. REBIF [Suspect]
     Active Substance: INTERFERON BETA-1A
     Route: 058
     Dates: start: 20100813
  2. REBIF [Suspect]
     Active Substance: INTERFERON BETA-1A
     Indication: MULTIPLE SCLEROSIS
     Route: 058
     Dates: start: 200609
  3. REBIF [Suspect]
     Active Substance: INTERFERON BETA-1A
     Route: 058
     Dates: start: 2007
  4. COVID?19 VACCINATION [Concomitant]
     Indication: COVID-19 IMMUNISATION
  5. REBIF [Suspect]
     Active Substance: INTERFERON BETA-1A
     Dosage: MANUAL
     Route: 058
     Dates: start: 2009

REACTIONS (4)
  - Pulmonary embolism [Recovered/Resolved]
  - Post procedural complication [Recovered/Resolved]
  - Thrombosis [Recovered/Resolved]
  - Arthritis [Recovering/Resolving]

NARRATIVE: CASE EVENT DATE: 20201201
